FAERS Safety Report 7622011-5 (Version None)
Quarter: 2011Q3

REPORT INFORMATION
  Report Type: 
  Country: None (occurrence: None)
  Receive Date: 20110720
  Receipt Date: 20101108
  Transmission Date: 20111222
  Serious: No
  Sender: FDA-Public Use
  Company Number: PT-BAYER-2010-001292

PATIENT
  Age: 37 Year
  Sex: Female

DRUGS (1)
  1. ULTRAVIST 150 [Suspect]
     Dosage: 80 ML, UNK
     Dates: start: 20101108, end: 20101108

REACTIONS (3)
  - EXTRAVASATION [None]
  - PAIN IN EXTREMITY [None]
  - FEELING HOT [None]
